FAERS Safety Report 8798247 (Version 1)
Quarter: 2012Q4

REPORT INFORMATION
  Report Type: 
  Country: DE (occurrence: DE)
  Receive Date: 20120920
  Receipt Date: 20120920
  Transmission Date: 20130627
  Serious: Yes (Other)
  Sender: FDA-Public Use
  Company Number: DE-AMGEN-DEUSP2012058587

PATIENT
  Age: 67 Year
  Sex: Female

DRUGS (4)
  1. ENBREL [Suspect]
     Indication: RHEUMATOID ARTHRITIS
     Dosage: 50 mg, weekly
     Dates: start: 20100318, end: 2012
  2. ENBREL [Suspect]
     Indication: POLYARTHRITIS
     Dosage: UNK
  3. MTX                                /00113801/ [Concomitant]
     Dosage: 20 mg, UNK
     Route: 058
  4. FOLIC ACID [Concomitant]
     Dosage: UNK

REACTIONS (1)
  - Rheumatoid arthritis [Unknown]
